FAERS Safety Report 4763758-8 (Version None)
Quarter: 2005Q3

REPORT INFORMATION
  Report Type: 
  Country: None (occurrence: None)
  Receive Date: 20050908
  Receipt Date: 20050902
  Transmission Date: 20060218
  Serious: Yes (Hospitalization)
  Sender: FDA-Public Use
  Company Number: GB-SANOFI-SYNTHELABO-A01200506033

PATIENT
  Age: 67 Year
  Sex: Male

DRUGS (6)
  1. OXALIPLATIN [Suspect]
     Indication: COLON CANCER
     Route: 042
     Dates: start: 20050816, end: 20050816
  2. CAPECITABINE [Concomitant]
     Indication: COLON CANCER
     Dosage: 2000 MG BID FOR 14 DAYS
     Route: 048
  3. DEXAMETHASONE [Concomitant]
     Route: 042
  4. ONDANSETRON [Concomitant]
     Dosage: 8 MG FOR 2 DAYS
     Route: 042
  5. DOMPERIDONE [Concomitant]
     Dosage: 20 MG PRN QDS
     Route: 048
  6. SANDO K [Concomitant]
     Indication: SUBSTITUTION THERAPY
     Dosage: 2 TDS
     Route: 048
     Dates: end: 20050816

REACTIONS (5)
  - CHOKING SENSATION [None]
  - DIPLOPIA [None]
  - MUSCLE SPASMS [None]
  - PARAESTHESIA [None]
  - POSITIVE ROMBERGISM [None]
